FAERS Safety Report 4269840-6 (Version None)
Quarter: 2004Q1

REPORT INFORMATION
  Report Type: 
  Country: None (occurrence: None)
  Receive Date: 20040112
  Receipt Date: 20040106
  Transmission Date: 20041129
  Serious: Yes (Death)
  Sender: FDA-Public Use
  Company Number: 04P-163-0246225-00

PATIENT
  Age: 64 Year
  Sex: Male

DRUGS (5)
  1. HUMIRA [Suspect]
     Indication: RHEUMATOID ARTHRITIS
     Dosage: 40 MG, 1 IN 2 WK, SUBCUTANEOUS
     Route: 058
     Dates: start: 20031001
  2. DRUG USED IN DIABETES [Concomitant]
  3. ANTIDEPRESSANTS [Concomitant]
  4. ANTIHYPERTENSIVES [Concomitant]
  5. ANTIARRHYTHMICS [Concomitant]

REACTIONS (2)
  - COMPLETED SUICIDE [None]
  - TREATMENT NONCOMPLIANCE [None]
